FAERS Safety Report 8273328-5 (Version None)
Quarter: 2012Q2

REPORT INFORMATION
  Report Type: 
  Country: None (occurrence: None)
  Receive Date: 20120411
  Receipt Date: 20120405
  Transmission Date: 20120825
  Serious: Yes (Disabling, Other)
  Sender: FDA-Public Use
  Company Number: PHFR2012GB002148

PATIENT
  Age: 63 Year
  Sex: Female

DRUGS (8)
  1. LETROZOLE [Suspect]
     Indication: BREAST CANCER
     Dosage: 2.5 MG, QD
     Route: 048
     Dates: start: 20111116, end: 20120307
  2. BISOPROLOL FUMARATE [Concomitant]
     Dosage: 2.5 MG, UNK
     Route: 048
  3. ACETAMINOPHEN [Concomitant]
     Dosage: 1 G, UNK
     Route: 048
  4. ASPIRIN [Concomitant]
     Dosage: 75 MG, UNK
     Route: 048
  5. SIMVASTATIN [Suspect]
     Indication: HYPERCHOLESTEROLAEMIA
     Dosage: 20 MG, QD
     Route: 048
     Dates: end: 20120319
  6. LANSOPRAZOLE [Concomitant]
     Dosage: 15 MG, UNK
     Route: 048
  7. SERTRALINE HYDROCHLORIDE [Concomitant]
     Dosage: 100 MG, UNK
     Route: 048
  8. CALCIUM CARBONATE [Concomitant]
     Dosage: 1 DF, BID
     Route: 048

REACTIONS (4)
  - ARTHRALGIA [None]
  - MYALGIA [None]
  - BLOOD CREATINE PHOSPHOKINASE INCREASED [None]
  - MOBILITY DECREASED [None]
